FAERS Safety Report 8451474-0 (Version None)
Quarter: 2012Q2

REPORT INFORMATION
  Report Type: 
  Country: None (occurrence: None)
  Receive Date: 20120620
  Receipt Date: 20120313
  Transmission Date: 20120825
  Serious: No
  Sender: FDA-Public Use
  Company Number: US-VERTEX PHARMACEUTICALS INC.-AE-2012-003101

PATIENT
  Sex: Female
  Weight: 56.75 kg

DRUGS (6)
  1. COPEGUS [Concomitant]
     Indication: HEPATITIS C
     Route: 048
     Dates: start: 20120223
  2. SUBOXONE [Concomitant]
     Indication: DETOXIFICATION
     Route: 048
  3. XANAX [Concomitant]
     Indication: DEPRESSION
     Route: 048
  4. LITHIUM [Concomitant]
     Indication: BIPOLAR DISORDER
     Route: 048
  5. INCIVEK [Suspect]
     Indication: HEPATITIS C
     Route: 048
     Dates: start: 20120223
  6. PEGASYS [Concomitant]
     Indication: HEPATITIS C
     Route: 058
     Dates: start: 20120223

REACTIONS (7)
  - SLEEP DISORDER [None]
  - STOMATITIS [None]
  - NAUSEA [None]
  - FATIGUE [None]
  - PRURITUS GENERALISED [None]
  - DECREASED APPETITE [None]
  - WEIGHT DECREASED [None]
